FAERS Safety Report 7725954-7 (Version None)
Quarter: 2011Q3

REPORT INFORMATION
  Report Type: 
  Country: None (occurrence: None)
  Receive Date: 20110902
  Receipt Date: 20110819
  Transmission Date: 20111222
  Serious: Yes (Hospitalization)
  Sender: FDA-Public Use
  Company Number: FR-JNJFOC-20110812462

PATIENT
  Sex: Male

DRUGS (4)
  1. LODINE [Suspect]
     Indication: CHEST PAIN
     Route: 048
     Dates: start: 20110701, end: 20110706
  2. XALATAN [Concomitant]
     Indication: GLAUCOMA
     Route: 065
  3. ACETAMINOPHEN AND TRAMADOL HCL [Suspect]
     Indication: CHEST PAIN
     Route: 065
     Dates: start: 20110701, end: 20110706
  4. TETRAZEPAM [Suspect]
     Indication: CHEST PAIN
     Route: 048
     Dates: start: 20110701, end: 20110706

REACTIONS (2)
  - INFECTION [None]
  - LUNG INFECTION [None]
